FAERS Safety Report 6170810-1 (Version None)
Quarter: 2009Q2

REPORT INFORMATION
  Report Type: 
  Country: None (occurrence: None)
  Receive Date: 20090427
  Receipt Date: 20090414
  Transmission Date: 20091009
  Serious: Yes (Hospitalization, Other)
  Sender: FDA-Public Use
  Company Number: 2009AP001473

PATIENT
  Age: 57 Year
  Sex: Male

DRUGS (12)
  1. AMIODARONE HCL [Suspect]
     Indication: ATRIAL FIBRILLATION
     Dosage: 150 MG;1X;IV ; 1 MG/MIN ; 0.5 MG/MIN ; 400 MG;BID ; 200 MG;QD
     Route: 042
  2. SIROLIMUS [Suspect]
     Indication: IMMUNOSUPPRESSION
     Dosage: 4 MG;QD
  3. ACETYLSALICYLIC ACID [Concomitant]
  4. CARVEDILOL [Concomitant]
  5. ESOMEPRAZOLE MAGNESIUM [Concomitant]
  6. EZETIMIBE [Concomitant]
  7. OLANZAPINE [Concomitant]
  8. SERTRALINE HCL [Concomitant]
  9. TIOTROPIUM [Concomitant]
  10. ALBUTEROL [Concomitant]
  11. WARFARIN SODIUM [Concomitant]
  12. ISONIAZID [Concomitant]

REACTIONS (19)
  - ANAEMIA [None]
  - BACTERIAL INFECTION [None]
  - CARDIAC MURMUR [None]
  - CATHETER SEPSIS [None]
  - CONDITION AGGRAVATED [None]
  - DEHYDRATION [None]
  - DRUG TOXICITY [None]
  - EJECTION FRACTION DECREASED [None]
  - ESCHERICHIA INFECTION [None]
  - HAEMODIALYSIS [None]
  - INTERSTITIAL LUNG DISEASE [None]
  - MITRAL VALVE INCOMPETENCE [None]
  - NIGHT SWEATS [None]
  - NOSOCOMIAL INFECTION [None]
  - PLATELET COUNT DECREASED [None]
  - PNEUMONITIS [None]
  - RENAL FAILURE ACUTE [None]
  - WEIGHT DECREASED [None]
  - WHITE BLOOD CELL COUNT DECREASED [None]
